FAERS Safety Report 16994694 (Version 2)
Quarter: 2019Q4

REPORT INFORMATION
  Report Type: Report from Study
  Country: CA (occurrence: CA)
  Receive Date: 20191105
  Receipt Date: 20191118
  Transmission Date: 20200122
  Serious: No
  Sender: FDA-Public Use
  Company Number: CA-BEH-2019108901

PATIENT
  Age: 5 Year
  Sex: Male

DRUGS (2)
  1. HAEMATE P [Suspect]
     Active Substance: ANTIHEMOPHILIC FACTOR HUMAN
     Indication: FACTOR VIII DEFICIENCY
     Dosage: 2000 RCOF TWICE WEEKLY PROPHYLACTIC
     Route: 042
  2. HAEMATE P [Suspect]
     Active Substance: ANTIHEMOPHILIC FACTOR HUMAN
     Indication: FACTOR VIII DEFICIENCY
     Dosage: 2000 RCOF TWICE WEEKLY PROPHYLACTIC
     Route: 042

REACTIONS (4)
  - Loose tooth [Recovered/Resolved with Sequelae]
  - Fall [Recovering/Resolving]
  - Tooth pulp haemorrhage [Recovered/Resolved]
  - Traumatic haematoma [Recovering/Resolving]

NARRATIVE: CASE EVENT DATE: 201910
